FAERS Safety Report 6933829-6 (Version None)
Quarter: 2010Q3

REPORT INFORMATION
  Report Type: 
  Country: None (occurrence: None)
  Receive Date: 20100820
  Receipt Date: 20100809
  Transmission Date: 20110219
  Serious: Yes (Other)
  Sender: FDA-Public Use
  Company Number: CA-JNJFOC-20100803346

PATIENT
  Sex: Male
  Weight: 83 kg

DRUGS (9)
  1. REMICADE [Suspect]
     Indication: COLITIS ULCERATIVE
     Route: 042
  2. REMICADE [Suspect]
     Route: 042
  3. REMICADE [Suspect]
     Dosage: 3RD DOSE
     Route: 042
  4. ASACOL [Concomitant]
  5. PREDNISONE [Concomitant]
  6. CRESTOR [Concomitant]
  7. OMEPRAZOLE [Concomitant]
  8. CARVEDILOL [Concomitant]
  9. TMS [Concomitant]

REACTIONS (2)
  - INTESTINAL OPERATION [None]
  - PRURITUS [None]
